FAERS Safety Report 8228286-6 (Version None)
Quarter: 2012Q1

REPORT INFORMATION
  Report Type: 
  Country: None (occurrence: None)
  Receive Date: 20120322
  Receipt Date: 20120123
  Transmission Date: 20120608
  Serious: Yes (Hospitalization)
  Sender: FDA-Public Use
  Company Number: US-BRISTOL-MYERS SQUIBB COMPANY-16156390

PATIENT
  Age: 60 Year
  Sex: Female

DRUGS (10)
  1. ALBUTEROL [Concomitant]
     Indication: PREMEDICATION
     Route: 055
  2. SOLU-MEDROL [Concomitant]
     Indication: PREMEDICATION
     Route: 042
  3. AMITRIPTYLINE HCL [Concomitant]
  4. BENADRYL [Concomitant]
     Indication: PREMEDICATION
     Route: 042
  5. GABAPENTIN [Concomitant]
  6. ERBITUX [Suspect]
     Dosage: NO OF INF:1 LOADING DOSE 25MG ADMINISTERED
     Dates: start: 20110810
  7. PEPCID [Concomitant]
     Indication: PREMEDICATION
     Route: 042
  8. ALENDRONATE SODIUM [Concomitant]
  9. DILANTIN [Concomitant]
  10. IBUPROFEN [Concomitant]

REACTIONS (1)
  - ANAPHYLACTIC REACTION [None]
